FAERS Safety Report 10083016 (Version 3)
Quarter: 2014Q2

REPORT INFORMATION
  Report Type: Report from Study
  Country: US (occurrence: US)
  Receive Date: 20140417
  Receipt Date: 20140526
  Transmission Date: 20141212
  Serious: Yes (Hospitalization)
  Sender: FDA-Public Use
  Company Number: US-BIOGENIDEC-2014BI036176

PATIENT
  Age: 49 Year
  Sex: Female

DRUGS (4)
  1. TYSABRI [Suspect]
     Indication: MULTIPLE SCLEROSIS
     Route: 042
     Dates: start: 20111207, end: 20140207
  2. AVONEX [Concomitant]
     Indication: MULTIPLE SCLEROSIS
     Route: 030
  3. AVONEX [Concomitant]
     Indication: MULTIPLE SCLEROSIS
     Route: 030
  4. AVONEX [Concomitant]
     Indication: MULTIPLE SCLEROSIS
     Route: 030
     Dates: start: 20030323

REACTIONS (10)
  - Excessive skin [Not Recovered/Not Resolved]
  - Organ failure [Recovered/Resolved]
  - Sepsis [Not Recovered/Not Resolved]
  - Surgery [Unknown]
  - Coma [Recovered/Resolved]
  - Myocardial infarction [Recovered/Resolved]
  - Dysuria [Recovered/Resolved]
  - Haemorrhage [Recovered/Resolved]
  - Weight decreased [Unknown]
  - Infection [Recovered/Resolved]
